FAERS Safety Report 10954758 (Version 2)
Quarter: 2015Q2

REPORT INFORMATION
  Report Type: Report from Study
  Country: US (occurrence: US)
  Receive Date: 20150325
  Receipt Date: 20150408
  Transmission Date: 20150821
  Serious: Yes (Hospitalization)
  Sender: FDA-Public Use
  Company Number: US-SA-2014SA048903

PATIENT
  Age: 51 Year
  Sex: Female
  Weight: 112.49 kg

DRUGS (3)
  1. DEPAKOTE [Concomitant]
     Active Substance: DIVALPROEX SODIUM
     Indication: SEIZURE
  2. ANTIHYPERTENSIVES [Concomitant]
     Active Substance: UNSPECIFIED INGREDIENT
     Indication: BLADDER DISORDER
  3. AUBAGIO [Suspect]
     Active Substance: TERIFLUNOMIDE
     Indication: MULTIPLE SCLEROSIS
     Route: 048
     Dates: start: 20140328

REACTIONS (20)
  - Thrombosis [Unknown]
  - Malaise [Unknown]
  - Speech disorder [Unknown]
  - Nausea [Not Recovered/Not Resolved]
  - Alopecia [Unknown]
  - Wound infection [Unknown]
  - Peripheral swelling [Unknown]
  - Weight increased [Unknown]
  - Headache [Unknown]
  - Nasopharyngitis [Not Recovered/Not Resolved]
  - Sluggishness [Unknown]
  - Hypoaesthesia [Not Recovered/Not Resolved]
  - Pain [Not Recovered/Not Resolved]
  - Contusion [Unknown]
  - Dyspnoea [Unknown]
  - Fatigue [Unknown]
  - Paraesthesia [Unknown]
  - Hypoaesthesia [Not Recovered/Not Resolved]
  - Abdominal hernia [Unknown]
  - Tremor [Unknown]

NARRATIVE: CASE EVENT DATE: 2014
